FAERS Safety Report 23710979 (Version 2)
Quarter: 2024Q2

REPORT INFORMATION
  Report Type: Spontaneous
  Country: US (occurrence: US)
  Receive Date: 20240405
  Receipt Date: 20240617
  Transmission Date: 20240715
  Serious: No
  Sender: FDA-Public Use
  Company Number: US-009507513-2404USA000138

PATIENT
  Age: 1 Year
  Weight: 10.839 kg

DRUGS (7)
  1. PROQUAD [Suspect]
     Active Substance: MEASLES VIRUS STRAIN ENDERS^ ATTENUATED EDMONSTON LIVE ANTIGEN\MUMPS VIRUS STRAIN B LEVEL JERYL LYNN
     Indication: Prophylaxis
     Dosage: 1 DOSAGE FORM
     Route: 058
     Dates: start: 20240329
  2. STERILE DILUENT (WATER) [Suspect]
     Active Substance: WATER
     Dosage: 1 DOSE
     Route: 058
     Dates: start: 20240329
  3. PEDIARIX [Concomitant]
     Active Substance: DIPHTHERIA AND TETANUS TOXOIDS AND ACELLULAR PERTUSSIS AND HEPATITIS B AND INACTIVATED POLIOVIRUS VA
     Dosage: UNK
     Route: 030
     Dates: start: 20240329
  4. PEDVAXHIB [Concomitant]
     Active Substance: HAEMOPHILUS INFLUENZAE TYPE B CAPSULAR POLYSACCHARIDE MENINGOCOCCAL OUTER MEMBRANE PROTEIN CONJUGATE
     Route: 030
     Dates: start: 20240329
  5. PREVNAR 20 [Concomitant]
     Active Substance: PNEUMOCOCCAL 20-VALENT CONJUGATE VACCINE
     Dosage: UNK
     Route: 030
     Dates: start: 20240329
  6. HEPATITIS A [Concomitant]
     Dosage: UNK
     Route: 030
     Dates: start: 20240329
  7. FLUZONE [Concomitant]
     Active Substance: INFLUENZA A VIRUS A/CALIFORNIA/7/2009 X-179A (H1N1) ANTIGEN (FORMALDEHYDE INACTIVATED)\INFLUENZA A V
     Dosage: UNK
     Route: 030
     Dates: start: 20240329

REACTIONS (3)
  - Expired product administered [Unknown]
  - Product preparation issue [Unknown]
  - No adverse event [Unknown]

NARRATIVE: CASE EVENT DATE: 20240329
